FAERS Safety Report 4335218-X (Version None)
Quarter: 2004Q1

REPORT INFORMATION
  Report Type: 
  Country: None (occurrence: None)
  Receive Date: 20040329
  Receipt Date: 20031201
  Transmission Date: 20041129
  Serious: No
  Sender: FDA-Public Use
  Company Number: 03P-163-0243087-00

PATIENT
  Age: 57 Year
  Sex: Female
  Weight: 44.9061 kg

DRUGS (4)
  1. HUMIRA [Suspect]
     Indication: RHEUMATOID ARTHRITIS
     Dosage: 40 MG, 1 IN  2 WK, SUBCUTANEOUS
     Route: 058
     Dates: start: 20030401, end: 20031001
  2. HUMIRA [Suspect]
     Indication: RHEUMATOID ARTHRITIS
     Dosage: 40 MG, 1 IN  2 WK, SUBCUTANEOUS
     Route: 058
     Dates: start: 20031101
  3. PREDNISONE [Concomitant]
  4. FAMOTIDINE [Concomitant]

REACTIONS (3)
  - ASTHENIA [None]
  - INFLUENZA LIKE ILLNESS [None]
  - MYALGIA [None]
